FAERS Safety Report 5308200-3 (Version None)
Quarter: 2007Q2

REPORT INFORMATION
  Report Type: 
  Country: None (occurrence: None)
  Receive Date: 20070423
  Receipt Date: 20070410
  Transmission Date: 20071010
  Serious: No
  Sender: FDA-Public Use
  Company Number: 2007BI003365

PATIENT
  Sex: Female

DRUGS (3)
  1. AVONEX [Suspect]
     Indication: MULTIPLE SCLEROSIS
     Dosage: ; IM
     Route: 030
     Dates: start: 20000601
  2. KLONOPIN [Concomitant]
  3. CALCIUM SUPPLEMENT [Concomitant]

REACTIONS (4)
  - MULTIPLE SCLEROSIS [None]
  - MUSCLE DISORDER [None]
  - NEUROPATHY [None]
  - OPTIC NEURITIS [None]
